FAERS Safety Report 4750410-8 (Version None)
Quarter: 2005Q3

REPORT INFORMATION
  Report Type: 
  Country: None (occurrence: None)
  Receive Date: 20050819
  Receipt Date: 20050803
  Transmission Date: 20060218
  Serious: Yes (Death, Life-Threatening, Hospitalization)
  Sender: FDA-Public Use
  Company Number: WAES 0504FRA00083

PATIENT
  Age: 17 Day
  Sex: Male

DRUGS (3)
  1. INDOCIN I.V. [Suspect]
     Indication: PATENT DUCTUS ARTERIOSUS
     Dosage: 0.2 MG / BID
     Route: 042
     Dates: start: 20050304, end: 20050305
  2. IBUPROFEN [Suspect]
     Indication: PATENT DUCTUS ARTERIOSUS
     Dosage: SEE IMAGE
     Route: 042
     Dates: start: 20050222, end: 20050226
  3. IBUPROFEN [Suspect]
     Indication: PATENT DUCTUS ARTERIOSUS
     Dosage: SEE IMAGE
     Route: 042
     Dates: start: 20050301, end: 20050303

REACTIONS (14)
  - ANURIA [None]
  - CARDIAC ARREST [None]
  - CARDIOMEGALY [None]
  - CIRCULATORY FAILURE NEONATAL [None]
  - DILATATION ATRIAL [None]
  - DRUG INEFFECTIVE [None]
  - ENTEROCOCCAL INFECTION [None]
  - LIVER DISORDER [None]
  - NECROTISING ENTEROCOLITIS NEONATAL [None]
  - PERITONEAL FLUID ANALYSIS ABNORMAL [None]
  - POST PROCEDURAL COMPLICATION [None]
  - RENAL FAILURE [None]
  - STAPHYLOCOCCAL INFECTION [None]
  - VASODILATATION [None]
